FAERS Safety Report 10035170 (Version 2)
Quarter: 2014Q1

REPORT INFORMATION
  Report Type: Spontaneous
  Country: US (occurrence: US)
  Receive Date: 20140325
  Receipt Date: 20140325
  Transmission Date: 20141002
  Serious: Yes (Other)
  Sender: FDA-Public Use
  Company Number: US-GE HEALTHCARE MEDICAL DIAGNOSTICS-OSCN-PR-0807S-0463

PATIENT
  Age: 48 Year
  Sex: Female

DRUGS (154)
  1. OMNISCAN [Suspect]
     Indication: LOCALISED OEDEMA
     Route: 042
     Dates: start: 19990209, end: 19990209
  2. OMNISCAN [Suspect]
     Dates: start: 20031010, end: 20031010
  3. GADOLINIUM (UNSPECIFIED) [Suspect]
     Indication: BREAST MASS
     Route: 042
     Dates: start: 20080407, end: 20080407
  4. GADOLINIUM (UNSPECIFIED) [Suspect]
     Indication: HEPATIC CANCER
     Route: 042
     Dates: start: 19980209, end: 19980209
  5. MAGNEVIST [Suspect]
     Indication: HEADACHE
     Route: 042
     Dates: start: 19910512, end: 19910512
  6. MAGNEVIST [Suspect]
     Indication: NERVOUS SYSTEM DISORDER
     Route: 042
     Dates: start: 19980624, end: 19980624
  7. MAGNEVIST [Suspect]
     Indication: CEREBROVASCULAR ACCIDENT
     Route: 042
     Dates: start: 19980706, end: 19980706
  8. MAGNEVIST [Suspect]
     Indication: ASTHENIA
  9. ABSORBASE [Concomitant]
     Route: 061
  10. ACULAR LS [Concomitant]
     Route: 047
  11. ACYCLOVIR [Concomitant]
  12. AMBIEN [Concomitant]
  13. AMIODARONE [Concomitant]
  14. AMLODIPINE [Concomitant]
  15. AMOXICILLIN [Concomitant]
  16. AMPHOJEL [Concomitant]
  17. ARANESP [Concomitant]
  18. ASPIRIN [Concomitant]
  19. ATARAX [Concomitant]
  20. ATGAM [Concomitant]
  21. AVAPRO [Concomitant]
  22. BENADRYL [Concomitant]
  23. BETADINE [Concomitant]
     Route: 047
  24. BICITRA [Concomitant]
  25. BISACODYL [Concomitant]
  26. BUMEX [Concomitant]
  27. CALCI-MIX [Concomitant]
  28. CALCITROL [Concomitant]
  29. CALCIUM [Concomitant]
  30. CACLIUM GLUCONATE [Concomitant]
  31. CARDIZEM [Concomitant]
  32. CARDURA [Concomitant]
  33. CELESTONE [Concomitant]
  34. CELLCEPT [Concomitant]
  35. CEPHALEXIN [Concomitant]
  36. CHOLECALCIFEROL [Concomitant]
  37. CHOLESTYRAMINE LIGHT [Concomitant]
  38. CIPROFLOXACIN [Concomitant]
  39. CLARITIN [Concomitant]
  40. CLOBETASOL 0.05% [Concomitant]
  41. CLONIDINE [Concomitant]
  42. COLACE [Concomitant]
  43. COMPAZINE [Concomitant]
  44. COUMADIN [Concomitant]
  45. COZAAR [Concomitant]
  46. CYCLOBENZAPRINE [Concomitant]
  47. CYCLOSPORIN [Concomitant]
  48. CYTOVENE [Concomitant]
  49. CYTOXAN [Concomitant]
     Route: 042
  50. DAPSONE [Concomitant]
  51. DECADRON [Concomitant]
     Route: 061
  52. DILANTIN [Concomitant]
  53. DIOVAN [Concomitant]
  54. DIPHENOXYLATE [Concomitant]
  55. DIPROLENE [Concomitant]
  56. DOXAZOSIN [Concomitant]
  57. ECOTRIN [Concomitant]
  58. EPINEPHRINE [Concomitant]
  59. EPOGEN [Concomitant]
  60. FENTANYL [Concomitant]
  61. FERRLECIT [Concomitant]
     Route: 042
  62. FLONASE [Concomitant]
  63. FLUCONAZOLE [Concomitant]
  64. FOLIC ACID [Concomitant]
  65. FOSAMAX [Concomitant]
  66. GENTAMICIN [Concomitant]
  67. HALCION [Concomitant]
  68. HALOG [Concomitant]
  69. HEALON [Concomitant]
     Route: 031
  70. HECTOROL [Concomitant]
  71. HEXAVITAMIN [Concomitant]
  72. HISMANAL [Concomitant]
  73. HYDROCHLOROTHIAZIDE [Concomitant]
  74. IMDUR [Concomitant]
  75. IMODIUM [Concomitant]
  76. IMURAN [Concomitant]
  77. INSULIN [Concomitant]
  78. INTERFERON [Concomitant]
  79. IOPIDINE [Concomitant]
  80. IRON [Concomitant]
  81. KAYEXALATE [Concomitant]
  82. KAOPECTATE [Concomitant]
  83. K-PHOS [Concomitant]
  84. LACTULOSE [Concomitant]
  85. LASIX [Concomitant]
  86. LEVSIN [Concomitant]
  87. LIDOCAINE [Concomitant]
  88. LIPITOR [Concomitant]
  89. LOPRESSOR [Concomitant]
  90. LORATADINE [Concomitant]
  91. LOSARTAN [Concomitant]
  92. MIRALAX [Concomitant]
  93. MULTIVITAMIN [Concomitant]
  94. MYCOPHENOLIC ACID [Concomitant]
  95. NASONEX [Concomitant]
  96. NEBUPENT [Concomitant]
  97. NEPHROCAPS [Concomitant]
  98. NEPHRO-VITE [Concomitant]
  99. NETILMICIN [Concomitant]
  100. NEXIUM [Concomitant]
  101. NIFEREX [Concomitant]
  102. NITROQUICK [Concomitant]
  103. NORVASC [Concomitant]
  104. NYSTATIN [Concomitant]
  105. MUROMONAB-CD3 [Concomitant]
  106. OS-CAL [Concomitant]
  107. OXYCODONE [Concomitant]
  108. PAXIL [Concomitant]
  109. PERCOCET [Concomitant]
  110. PERSANTINE [Concomitant]
  111. PHOSPHORUS [Concomitant]
  112. PLAQUENIL [Concomitant]
  113. POTASSIUM CHLORIDE [Concomitant]
  114. PREDNISONE [Concomitant]
  115. PREVACID [Concomitant]
  116. PRILOSEC [Concomitant]
  117. PROCARDIA [Concomitant]
  118. PROCRIT [Concomitant]
  119. PROGRAF [Concomitant]
  120. PYRIDOXINE [Concomitant]
  121. QUININE [Concomitant]
  122. RENAGEL [Concomitant]
  123. RIBAVIRIN [Concomitant]
  124. ROCALTROL [Concomitant]
  125. SALINE [Concomitant]
     Route: 045
  126. SELDANE [Concomitant]
  127. SIMETHICONE [Concomitant]
  128. SIROLIMUS [Concomitant]
  129. SPIRONOLACTONE [Concomitant]
  130. TAC [Concomitant]
  131. TACROLIMUS [Concomitant]
  132. PANTOPRAZOLE SODIUM [Concomitant]
  133. TEMAZEPAM [Concomitant]
  134. TETRAVISC [Concomitant]
     Route: 061
  135. TIMOPTIC [Concomitant]
     Route: 047
  136. TRILYTE [Concomitant]
     Route: 048
  137. TUMS [Concomitant]
  138. VALIUM [Concomitant]
  139. VANCOMYCIN [Concomitant]
  140. VENOFER [Concomitant]
  141. VERSED [Concomitant]
  142. VIBRAMYCIN [Concomitant]
  143. VICODIN [Concomitant]
  144. VIOXX [Concomitant]
  145. VITAMIN B-12 [Concomitant]
  146. VITAMIN B6 [Concomitant]
  147. VITAMIN D [Concomitant]
  148. VITAMIN E [Concomitant]
  149. WELCHOL [Concomitant]
  150. ZANTAC [Concomitant]
  151. ZEMPLAR [Concomitant]
  152. ZETIA [Concomitant]
  153. ZOCOR [Concomitant]
  154. ZOVIRAX [Concomitant]
     Route: 061

REACTIONS (1)
  - Nephrogenic systemic fibrosis [Not Recovered/Not Resolved]
